FAERS Safety Report 8587174-6 (Version None)
Quarter: 2012Q3

REPORT INFORMATION
  Report Type: 
  Country: None (occurrence: None)
  Receive Date: 20120810
  Receipt Date: 20120216
  Transmission Date: 20120928
  Serious: No
  Sender: FDA-Public Use
  Company Number: US-ASTRAZENECA-2008UW28970

PATIENT
  Age: 72 Year
  Sex: Female
  Weight: 107.5 kg

DRUGS (4)
  1. VITAMIN TAB [Concomitant]
  2. ANTIBIOTICS [Interacting]
     Route: 065
  3. ARIMIDEX [Suspect]
     Indication: BREAST CANCER
     Route: 048
     Dates: start: 20060101
  4. MSM [Concomitant]

REACTIONS (15)
  - MEMORY IMPAIRMENT [None]
  - ARTHROPATHY [None]
  - MENTAL IMPAIRMENT [None]
  - MALAISE [None]
  - BLOOD CHOLESTEROL INCREASED [None]
  - WEIGHT DECREASED [None]
  - ARTHRALGIA [None]
  - DRUG INTERACTION [None]
  - ANOSMIA [None]
  - FATIGUE [None]
  - WEIGHT INCREASED [None]
  - INSOMNIA [None]
  - PAIN IN EXTREMITY [None]
  - TREMOR [None]
  - LOW DENSITY LIPOPROTEIN INCREASED [None]
